FAERS Safety Report 6740592-0 (Version None)
Quarter: 2010Q2

REPORT INFORMATION
  Report Type: 
  Country: None (occurrence: None)
  Receive Date: 20100525
  Receipt Date: 20100512
  Transmission Date: 20101027
  Serious: Yes (Hospitalization, Other)
  Sender: FDA-Public Use
  Company Number: ES-WATSON-2010-06473

PATIENT
  Age: 34 Year
  Sex: Female

DRUGS (2)
  1. TRELSTAR UNKNOWN STRENGTH (WATSON LABORATORIES) [Suspect]
     Indication: INFERTILITY
     Dosage: UNK
  2. CHORIONIC GONADOTROPIN [Suspect]
     Indication: INFERTILITY
     Dosage: UNK

REACTIONS (3)
  - AMAUROSIS [None]
  - CAROTID ARTERY THROMBOSIS [None]
  - OVARIAN HYPERSTIMULATION SYNDROME [None]
